FAERS Safety Report 8488364-3 (Version None)
Quarter: 2012Q3

REPORT INFORMATION
  Report Type: 
  Country: None (occurrence: None)
  Receive Date: 20120705
  Receipt Date: 20120625
  Transmission Date: 20120928
  Serious: Yes (Hospitalization)
  Sender: FDA-Public Use
  Company Number: FI-ELI_LILLY_AND_COMPANY-FI201206007663

PATIENT
  Sex: Female

DRUGS (10)
  1. ACETAMINOPHEN [Concomitant]
     Indication: ANALGESIC THERAPY
     Dosage: UNK
  2. CALCIUM+VIT D                      /00944201/ [Concomitant]
     Indication: MEDICAL DIET
     Dosage: UNK
  3. TRAMADOL HCL [Concomitant]
     Indication: ANALGESIC THERAPY
     Dosage: UNK
  4. VITAMIN B-12 [Concomitant]
     Indication: MEDICAL DIET
     Dosage: UNK
  5. SPIRIVA [Concomitant]
     Indication: ASTHMA
     Dosage: UNK
  6. IRON [Concomitant]
     Indication: MEDICAL DIET
     Dosage: UNK
  7. LEVOTHYROXINE SODIUM [Concomitant]
     Indication: HYPOTHYROIDISM
     Dosage: UNK
  8. FORTEO [Suspect]
     Indication: OSTEOPOROSIS
     Dosage: 20 UG, QD
     Route: 058
     Dates: start: 20110621
  9. VITAMIN D [Concomitant]
     Indication: MEDICAL DIET
     Dosage: UNK
  10. FLUTICASONE PROPIONATE/SALMETEROL [Concomitant]
     Indication: ASTHMA
     Dosage: UNK

REACTIONS (2)
  - FALL [None]
  - HAND FRACTURE [None]
